FAERS Safety Report 8337541-0 (Version None)
Quarter: 2012Q2

REPORT INFORMATION
  Report Type: 
  Country: None (occurrence: None)
  Receive Date: 20120504
  Receipt Date: 20120430
  Transmission Date: 20120825
  Serious: No
  Sender: FDA-Public Use
  Company Number: US-PFIZER INC-2012107478

PATIENT
  Sex: Female

DRUGS (3)
  1. CELEBREX [Suspect]
     Dosage: UNK
  2. KEFLEX [Suspect]
     Dosage: UNK
  3. ULTRACET [Suspect]
     Dosage: UNK

REACTIONS (3)
  - NAUSEA [None]
  - VOMITING [None]
  - DRUG HYPERSENSITIVITY [None]
